FAERS Safety Report 8639325 (Version 2)
Quarter: 2013Q1

REPORT INFORMATION
  Report Type: Spontaneous
  Country: US (occurrence: US)
  Receive Date: 20120627
  Receipt Date: 20130131
  Transmission Date: 20140127
  Serious: No
  Sender: FDA-Public Use
  Company Number: US-PFIZER INC-2012152241

PATIENT
  Sex: Female

DRUGS (2)
  1. NEURONTIN [Suspect]
     Dosage: UNK
  2. LYRICA [Concomitant]
     Dosage: UNK

REACTIONS (1)
  - Drug ineffective [Unknown]
